FAERS Safety Report 9587443 (Version 3)
Quarter: 2013Q4

REPORT INFORMATION
  Report Type: Spontaneous
  Country: AU (occurrence: AU)
  Receive Date: 20131003
  Receipt Date: 20131022
  Transmission Date: 20140711
  Serious: Yes (Disabling, Other)
  Sender: FDA-Public Use
  Company Number: AU-IPSEN BIOPHARMACEUTICALS, INC.-2013-4315

PATIENT
  Age: 46 Year
  Sex: Female

DRUGS (7)
  1. DYSPORT [Suspect]
     Indication: SKIN WRINKLING
     Dosage: NOT REPORTED
     Route: 030
     Dates: start: 20130808, end: 20130808
  2. DYSPORT [Suspect]
     Indication: SKIN COSMETIC PROCEDURE
  3. DYSPORT [Suspect]
     Indication: SKIN COSMETIC PROCEDURE
  4. DYSPORT [Suspect]
     Indication: SKIN WRINKLING
  5. DYSPORT [Suspect]
     Indication: OFF LABEL USE
  6. EFEXOR [Concomitant]
     Indication: MENTAL DISORDER
     Dosage: NOT REPORTED
     Route: 065
  7. XANAX [Concomitant]
     Indication: MENTAL DISORDER
     Dosage: NOT REPORTED
     Route: 065

REACTIONS (2)
  - Vitreous detachment [Unknown]
  - Overdose [Unknown]
